FAERS Safety Report 8985592 (Version 3)
Quarter: 2013Q2

REPORT INFORMATION
  Report Type: Report from Study
  Country: US (occurrence: US)
  Receive Date: 20121226
  Receipt Date: 20130403
  Transmission Date: 20140414
  Serious: Yes (Hospitalization)
  Sender: FDA-Public Use
  Company Number: US-US-EMD SERONO, INC.-7183724

PATIENT
  Age: 59 Year
  Sex: Female

DRUGS (2)
  1. REBIF [Suspect]
     Indication: MULTIPLE SCLEROSIS
     Route: 058
     Dates: start: 20120712, end: 20120813
  2. REBIF [Suspect]
     Route: 058
     Dates: start: 20130313

REACTIONS (3)
  - Pulmonary embolism [Unknown]
  - Joint swelling [Unknown]
  - Petechiae [Unknown]
